FAERS Safety Report 15326535 (Version 1)
Quarter: 2018Q3

REPORT INFORMATION
  Report Type: Report from Study
  Country: US (occurrence: US)
  Receive Date: 20180828
  Receipt Date: 20180828
  Transmission Date: 20181010
  Serious: Yes (Other)
  Sender: FDA-Public Use
  Company Number: PHHY2018US083258

PATIENT
  Sex: Male

DRUGS (1)
  1. COSENTYX [Suspect]
     Active Substance: SECUKINUMAB
     Indication: PSORIASIS
     Dosage: 300 MG, QW
     Route: 058

REACTIONS (6)
  - Weight decreased [Unknown]
  - Chronic kidney disease [Unknown]
  - Decreased immune responsiveness [Unknown]
  - Renal neoplasm [Unknown]
  - Mobility decreased [Unknown]
  - Pain in extremity [Unknown]
